FAERS Safety Report 16891029 (Version 1)
Quarter: 2019Q4

REPORT INFORMATION
  Report Type: Spontaneous
  Country: US (occurrence: US)
  Receive Date: 20191006
  Receipt Date: 20191006
  Transmission Date: 20200122
  Serious: Yes (Hospitalization, Disabling)
  Sender: FDA-Public Use
  Company Number: None

PATIENT
  Age: 44 Year
  Sex: Female

DRUGS (1)
  1. LORAZEPAM. [Suspect]
     Active Substance: LORAZEPAM
     Indication: PANIC ATTACK
     Dates: start: 20170821, end: 20171014

REACTIONS (15)
  - Akathisia [None]
  - Anxiety [None]
  - Fatigue [None]
  - Insomnia [None]
  - Myalgia [None]
  - Depression [None]
  - Tremor [None]
  - Ear pain [None]
  - Dizziness [None]
  - Headache [None]
  - Nightmare [None]
  - Suicidal ideation [None]
  - Neuralgia [None]
  - Head discomfort [None]
  - Pain [None]

NARRATIVE: CASE EVENT DATE: 20171005
